FAERS Safety Report 18472345 (Version 1)
Quarter: 2020Q4

REPORT INFORMATION
  Report Type: Spontaneous
  Country: IT (occurrence: IT)
  Receive Date: 20201106
  Receipt Date: 20201106
  Transmission Date: 20210114
  Serious: Yes (Hospitalization)
  Sender: FDA-Public Use
  Company Number: IT-TEVA-2020-IT-1846165

PATIENT
  Age: 27 Year
  Sex: Male

DRUGS (5)
  1. PREDNISONE. [Suspect]
     Active Substance: PREDNISONE
     Indication: IMMUNOSUPPRESSANT DRUG THERAPY
     Route: 065
  2. DARUNAVIR/RITONAVIR [Interacting]
     Active Substance: DARUNAVIR\RITONAVIR
     Indication: COVID-19
     Route: 065
     Dates: start: 202003, end: 20200403
  3. TACROLIMUS. [Interacting]
     Active Substance: TACROLIMUS
     Indication: IMMUNOSUPPRESSANT DRUG THERAPY
     Route: 065
  4. TACROLIMUS. [Interacting]
     Active Substance: TACROLIMUS
     Route: 065
  5. HYDROXYCHLOROQUINE [Interacting]
     Active Substance: HYDROXYCHLOROQUINE
     Indication: COVID-19
     Route: 065
     Dates: start: 202003

REACTIONS (5)
  - Off label use [Unknown]
  - COVID-19 [Recovered/Resolved]
  - Toxicity to various agents [Recovering/Resolving]
  - Acute kidney injury [Unknown]
  - Drug interaction [Recovering/Resolving]

NARRATIVE: CASE EVENT DATE: 202003
